FAERS Safety Report 22285276 (Version 1)
Quarter: 2023Q2

REPORT INFORMATION
  Report Type: Spontaneous
  Country: MX (occurrence: MX)
  Receive Date: 20230504
  Receipt Date: 20230504
  Transmission Date: 20230721
  Serious: Yes (Other)
  Sender: FDA-Public Use
  Company Number: MX-BoehringerIngelheim-2023-BI-233766

PATIENT
  Age: 59 Year
  Sex: Female
  Weight: 41 kg

DRUGS (6)
  1. JARDIANCE [Suspect]
     Active Substance: EMPAGLIFLOZIN
     Indication: Diabetes mellitus
     Dosage: UNIT DOSE: 1
     Dates: start: 20220331
  2. JARDIANCE [Suspect]
     Active Substance: EMPAGLIFLOZIN
     Dosage: UNIT DOSE: 1
     Dates: start: 202204, end: 20230329
  3. Tapazol [Concomitant]
     Indication: Hypothyroidism
     Dosage: 2 TABLETS IN THE MORNING, 2 IN THE AFTERNOON AND 2 AT NIGHT
     Dates: start: 202304
  4. LINAGLIPTIN\METFORMIN HYDROCHLORIDE [Concomitant]
     Active Substance: LINAGLIPTIN\METFORMIN HYDROCHLORIDE
     Indication: Type 2 diabetes mellitus
  5. INSULIN NOS [Concomitant]
     Active Substance: INSULIN NOS
     Indication: Product used for unknown indication
  6. PROZAC [Concomitant]
     Active Substance: FLUOXETINE HYDROCHLORIDE
     Indication: Type 2 diabetes mellitus
     Dosage: 1 TABLET IN THE MORNING 1 AT NIGHT
     Route: 048
     Dates: start: 202204, end: 20230329

REACTIONS (15)
  - Immunodeficiency [Unknown]
  - Weight decreased [Unknown]
  - COVID-19 [Recovered/Resolved]
  - Amnesia [Unknown]
  - Blood glucose increased [Unknown]
  - Anxiety [Unknown]
  - Thyroid disorder [Unknown]
  - Muscle spasms [Unknown]
  - Tachycardia [Unknown]
  - Nervousness [Unknown]
  - Thyroid mass [Unknown]
  - Peripheral swelling [Unknown]
  - Tremor [Unknown]
  - Skin discolouration [Unknown]
  - Skin discolouration [Unknown]

NARRATIVE: CASE EVENT DATE: 20220101
